FAERS Safety Report 9298785 (Version 1)
Quarter: 2013Q2

REPORT INFORMATION
  Report Type: Spontaneous
  Country: US (occurrence: US)
  Receive Date: 20130520
  Receipt Date: 20130520
  Transmission Date: 20140414
  Serious: Yes (Hospitalization)
  Sender: FDA-Public Use
  Company Number: US-BAYER-2013-060216

PATIENT
  Age: 25 Year
  Sex: Female
  Weight: 86.17 kg

DRUGS (9)
  1. YAZ [Suspect]
  2. YASMIN [Suspect]
  3. CELEXA [Concomitant]
  4. METRONIDAZOLE [Concomitant]
  5. TORADOL [Concomitant]
  6. DILAUDID [Concomitant]
  7. OXYCODONE [Concomitant]
  8. LORAZEPAM [Concomitant]
  9. ATIVAN [Concomitant]

REACTIONS (1)
  - Pulmonary embolism [None]
